APPROVED DRUG PRODUCT: FRAGMIN
Active Ingredient: DALTEPARIN SODIUM
Strength: 2,500IU/0.2ML (12,500IU/ML)
Dosage Form/Route: INJECTABLE;SUBCUTANEOUS
Application: N020287 | Product #001
Applicant: PFIZER INC
Approved: Dec 22, 1994 | RLD: Yes | RS: No | Type: RX